FAERS Safety Report 14976334 (Version 1)
Quarter: 2018Q2

REPORT INFORMATION
  Report Type: Spontaneous
  Country: US (occurrence: US)
  Receive Date: 20180605
  Receipt Date: 20180605
  Transmission Date: 20180711
  Serious: No
  Sender: FDA-Public Use
  Company Number: US-ROCHE-1964811

PATIENT
  Sex: Female
  Weight: 59.02 kg

DRUGS (5)
  1. MEDROL [Concomitant]
     Active Substance: METHYLPREDNISOLONE
     Indication: RHEUMATOID ARTHRITIS
     Dosage: YES
     Route: 048
     Dates: start: 201706
  2. MEDROL [Concomitant]
     Active Substance: METHYLPREDNISOLONE
     Dosage: NO
     Route: 048
     Dates: start: 2016, end: 201706
  3. METHOTREXATE. [Concomitant]
     Active Substance: METHOTREXATE
     Indication: RHEUMATOID ARTHRITIS
     Dosage: YES
     Route: 048
     Dates: start: 2016
  4. MEDROL [Concomitant]
     Active Substance: METHYLPREDNISOLONE
     Dosage: NO
     Route: 048
     Dates: start: 2016
  5. ACTEMRA [Suspect]
     Active Substance: TOCILIZUMAB
     Indication: RHEUMATOID ARTHRITIS
     Dosage: YES
     Route: 042
     Dates: start: 2016

REACTIONS (2)
  - Pain [Recovering/Resolving]
  - Memory impairment [Not Recovered/Not Resolved]

NARRATIVE: CASE EVENT DATE: 2016
